FAERS Safety Report 5007737-4 (Version None)
Quarter: 2006Q2

REPORT INFORMATION
  Report Type: 
  Country: None (occurrence: None)
  Receive Date: 20060522
  Receipt Date: 20060515
  Transmission Date: 20061013
  Serious: Yes (Other)
  Sender: FDA-Public Use
  Company Number: PHBS2006NL07194

PATIENT
  Age: 28 Year
  Sex: Female

DRUGS (2)
  1. TRIGYNON [Suspect]
  2. RITALIN [Suspect]
     Indication: ATTENTION DEFICIT/HYPERACTIVITY DISORDER
     Dosage: 10 MG, BID
     Route: 048
     Dates: start: 20060101

REACTIONS (3)
  - DRUG INTERACTION [None]
  - MENSTRUATION IRREGULAR [None]
  - UNINTENDED PREGNANCY [None]
